FAERS Safety Report 9560024 (Version 1)
Quarter: 2013Q3

REPORT INFORMATION
  Report Type: Spontaneous
  Country: US (occurrence: None)
  Receive Date: 20130909
  Receipt Date: 20130909
  Transmission Date: 20140515
  Serious: Yes (Hospitalization)
  Sender: FDA-Public Use
  Company Number: 380189

PATIENT
  Age: 62 Year
  Sex: Female
  Weight: 122.9 kg

DRUGS (5)
  1. VICTOZA [Suspect]
     Indication: TYPE 2 DIABETES MELLITUS
     Route: 058
     Dates: start: 2012, end: 201305
  2. NOVOLOG (INSULIN ASPART) [Concomitant]
  3. LANTUS (INSULIN GLARGINE) [Concomitant]
  4. AMLODIPINE [Concomitant]
  5. CLONIDINE [Concomitant]

REACTIONS (1)
  - Pancreatitis [None]
